FAERS Safety Report 14141051 (Version 1)
Quarter: 2017Q4

REPORT INFORMATION
  Report Type: Spontaneous
  Country: CH (occurrence: CH)
  Receive Date: 20171030
  Receipt Date: 20171030
  Transmission Date: 20180321
  Serious: Yes (Other)
  Sender: FDA-Public Use
  Company Number: CH-LPDUSPRD-20171453

PATIENT
  Age: 38 Year
  Sex: Female
  Weight: 56 kg

DRUGS (1)
  1. FERINJECT [Suspect]
     Active Substance: FERRIC CARBOXYMALTOSE
     Dosage: 500 MG, 2 OR 3 TIMES
     Route: 041
     Dates: start: 2002

REACTIONS (5)
  - Erythema [Recovered/Resolved]
  - Exposure during pregnancy [Recovered/Resolved]
  - Intentional product use issue [Unknown]
  - Abortion induced [Unknown]
  - Skin plaque [Recovered/Resolved]

NARRATIVE: CASE EVENT DATE: 20170531
